FAERS Safety Report 21591879 (Version 1)
Quarter: 2022Q4

REPORT INFORMATION
  Report Type: Spontaneous
  Country: CA (occurrence: CA)
  Receive Date: 20221114
  Receipt Date: 20221114
  Transmission Date: 20230113
  Serious: Yes (Other)
  Sender: FDA-Public Use
  Company Number: CA-ALLERGAN-2237308US

PATIENT
  Sex: Female

DRUGS (1)
  1. BOTOX COSMETIC [Suspect]
     Active Substance: ONABOTULINUMTOXINA
     Indication: Product used for unknown indication
     Dosage: UNK, SINGLE

REACTIONS (42)
  - Erythema [Unknown]
  - Vascular injury [Unknown]
  - Chest pain [Unknown]
  - Blood pressure fluctuation [Unknown]
  - Head discomfort [Unknown]
  - Motor dysfunction [Unknown]
  - Chest discomfort [Unknown]
  - Abnormal loss of weight [Unknown]
  - Neuromuscular toxicity [Unknown]
  - Infection [Unknown]
  - Viral infection [Unknown]
  - Blindness [Unknown]
  - Palpitations [Unknown]
  - Hypervigilance [Unknown]
  - Depersonalisation/derealisation disorder [Unknown]
  - Paranasal sinus discomfort [Unknown]
  - Sinusitis [Unknown]
  - Postural orthostatic tachycardia syndrome [Unknown]
  - Mast cell activation syndrome [Unknown]
  - Disturbance in attention [Unknown]
  - Heart rate irregular [Unknown]
  - Hormone level abnormal [Unknown]
  - Syncope [Unknown]
  - Gait disturbance [Unknown]
  - Paralysis [Unknown]
  - Muscle twitching [Unknown]
  - Hypoaesthesia [Unknown]
  - Hypoaesthesia [Unknown]
  - Cyanosis [Unknown]
  - Inflammation [Unknown]
  - Speech disorder [Unknown]
  - Anaphylactic reaction [Unknown]
  - Tinnitus [Unknown]
  - Muscle spasms [Unknown]
  - Dysphagia [Unknown]
  - Muscle atrophy [Unknown]
  - Hyperhidrosis [Unknown]
  - Dyspnoea [Unknown]
  - Alopecia [Unknown]
  - Urinary incontinence [Unknown]
  - Dizziness [Unknown]
  - Anaphylactic reaction [Recovering/Resolving]
